FAERS Safety Report 14308505 (Version 1)
Quarter: 2017Q4

REPORT INFORMATION
  Report Type: Spontaneous
  Country: US (occurrence: US)
  Receive Date: 20171220
  Receipt Date: 20171220
  Transmission Date: 20180321
  Serious: Yes (Disabling)
  Sender: FDA-Public Use
  Company Number: None

PATIENT
  Sex: Male
  Weight: 103.5 kg

DRUGS (11)
  1. QUETIAPINE FUMARATE. [Concomitant]
     Active Substance: QUETIAPINE FUMARATE
  2. DAILY MULTI-VITAMIN [Concomitant]
     Active Substance: VITAMINS
  3. FENOFIBRATE. [Concomitant]
     Active Substance: FENOFIBRATE
  4. PANTOPRAZOLE [Concomitant]
     Active Substance: PANTOPRAZOLE
  5. FOLIC ACID. [Concomitant]
     Active Substance: FOLIC ACID
  6. FISH OIL SUPPLEMENT [Concomitant]
     Active Substance: FISH OIL
  7. LOW DOSE ASPIRIN [Concomitant]
     Active Substance: ASPIRIN
  8. LEVOFLOXACIN. [Suspect]
     Active Substance: LEVOFLOXACIN
     Indication: BRONCHITIS BACTERIAL
     Dosage: ?          QUANTITY:1 TABLET(S);?
     Route: 048
  9. SPIRONOLACTONE. [Concomitant]
     Active Substance: SPIRONOLACTONE
  10. METOPROLOL SUCC [Concomitant]
     Active Substance: METOPROLOL SUCCINATE
  11. CLOPIDOGREL BISULFATE. [Concomitant]
     Active Substance: CLOPIDOGREL BISULFATE

REACTIONS (7)
  - Pain in extremity [None]
  - Tendon pain [None]
  - Arthralgia [None]
  - Tendon discomfort [None]
  - Gait disturbance [None]
  - Dysstasia [None]
  - Tendon disorder [None]

NARRATIVE: CASE EVENT DATE: 20171201
